FAERS Safety Report 5284967-8 (Version None)
Quarter: 2007Q2

REPORT INFORMATION
  Report Type: 
  Country: None (occurrence: None)
  Receive Date: 20070403
  Receipt Date: 20070327
  Transmission Date: 20071010
  Serious: Yes (Death)
  Sender: FDA-Public Use
  Company Number: SG-PFIZER INC-2007024462

PATIENT
  Age: 50 Year
  Sex: Male
  Weight: 72.9 kg

DRUGS (5)
  1. VIAGRA [Suspect]
     Indication: ERECTILE DYSFUNCTION
     Route: 048
  2. TELMISARTAN [Concomitant]
     Route: 048
  3. NIFEDIPINE [Concomitant]
     Route: 048
  4. GLICLAZIDE [Concomitant]
     Route: 048
  5. METFORMIN HCL [Concomitant]
     Route: 048

REACTIONS (3)
  - DEATH [None]
  - DYSPNOEA [None]
  - FOAMING AT MOUTH [None]
